FAERS Safety Report 6667894-0 (Version None)
Quarter: 2010Q2

REPORT INFORMATION
  Report Type: 
  Country: None (occurrence: None)
  Receive Date: 20100405
  Receipt Date: 20100324
  Transmission Date: 20101027
  Serious: Yes (Other)
  Sender: FDA-Public Use
  Company Number: DE-PFIZER INC-2010033694

PATIENT
  Sex: Male

DRUGS (3)
  1. CHAMPIX [Suspect]
     Dosage: UNK
     Dates: start: 20100101
  2. CORTISONE [Concomitant]
     Indication: LUNG DISORDER
  3. DIPYRONE TAB [Concomitant]

REACTIONS (4)
  - HYPERSENSITIVITY [None]
  - PRURITUS [None]
  - RHINORRHOEA [None]
  - SNEEZING [None]
